FAERS Safety Report 21984084 (Version 6)
Quarter: 2024Q1

REPORT INFORMATION
  Report Type: Spontaneous
  Country: US (occurrence: US)
  Receive Date: 20230213
  Receipt Date: 20240329
  Transmission Date: 20240410
  Serious: Yes (Other)
  Sender: FDA-Public Use
  Company Number: US-GSK-US2023019840

PATIENT

DRUGS (6)
  1. BENLYSTA [Suspect]
     Active Substance: BELIMUMAB
     Indication: Systemic lupus erythematosus
     Dosage: 200 MG, WE, ONCE WEEKLY
  2. BENLYSTA [Suspect]
     Active Substance: BELIMUMAB
  3. BENLYSTA [Suspect]
     Active Substance: BELIMUMAB
     Indication: Systemic lupus erythematosus
     Dosage: 200 MG, WE
     Dates: start: 20230119
  4. BENLYSTA [Suspect]
     Active Substance: BELIMUMAB
     Indication: Product used for unknown indication
     Dosage: UNK
     Dates: start: 20240306
  5. HYDROXYCHLOROQUINE [Concomitant]
     Active Substance: HYDROXYCHLOROQUINE
     Indication: Immune system disorder
     Dosage: 200 UG
  6. IMURAN [Concomitant]
     Active Substance: AZATHIOPRINE
     Indication: Swelling
     Dosage: 50 MG, QD

REACTIONS (12)
  - Crohn^s disease [Unknown]
  - Headache [Unknown]
  - Influenza like illness [Unknown]
  - Fatigue [Recovering/Resolving]
  - Rhinorrhoea [Not Recovered/Not Resolved]
  - Promotion of wound healing [Unknown]
  - Cough [Recovering/Resolving]
  - Skin laceration [Recovering/Resolving]
  - Sneezing [Unknown]
  - Laboratory test abnormal [Unknown]
  - Renal pain [Unknown]
  - Product dose omission issue [Unknown]
